FAERS Safety Report 17335347 (Version 2)
Quarter: 2020Q1

REPORT INFORMATION
  Report Type: Spontaneous
  Country: BR (occurrence: BR)
  Receive Date: 20200128
  Receipt Date: 20200324
  Transmission Date: 20200409
  Serious: Yes (Hospitalization)
  Sender: FDA-Public Use
  Company Number: BR-GLAXOSMITHKLINE-BR2018GSK215886

PATIENT
  Sex: Male

DRUGS (1)
  1. NUCALA [Suspect]
     Active Substance: MEPOLIZUMAB
     Indication: ASTHMA
     Dosage: 100 MG, UNK
     Dates: start: 20181112

REACTIONS (6)
  - Product dose omission [Unknown]
  - Cough [Recovered/Resolved]
  - Inappropriate schedule of product administration [Unknown]
  - Wheezing [Recovered/Resolved]
  - Product availability issue [Unknown]
  - Hospitalisation [Unknown]
